FAERS Safety Report 6537790-8 (Version None)
Quarter: 2010Q1

REPORT INFORMATION
  Report Type: 
  Country: None (occurrence: None)
  Receive Date: 20100114
  Receipt Date: 20100107
  Transmission Date: 20100710
  Serious: Yes (Other)
  Sender: FDA-Public Use
  Company Number: US-PFIZER INC-2010003078

PATIENT
  Sex: Female
  Weight: 63.492 kg

DRUGS (3)
  1. CELEBREX [Suspect]
     Indication: TENDONITIS
     Route: 048
     Dates: start: 20091101, end: 20100106
  2. MULTI-VITAMINS [Concomitant]
     Route: 048
  3. ESTROGENS [Concomitant]
     Route: 048

REACTIONS (1)
  - VENTRICULAR EXTRASYSTOLES [None]
